FAERS Safety Report 4905578-7 (Version None)
Quarter: 2006Q1

REPORT INFORMATION
  Report Type: 
  Country: None (occurrence: None)
  Receive Date: 20060113
  Receipt Date: 20051123
  Transmission Date: 20060701
  Serious: No
  Sender: FDA-Public Use
  Company Number: 2005SP004129

PATIENT
  Age: 65 Year
  Sex: Male
  Weight: 113.3993 kg

DRUGS (4)
  1. LUNESTA [Suspect]
     Dosage: 3 MG;HS;ORAL
     Route: 048
     Dates: start: 20051122, end: 20051101
  2. AMBIEN [Concomitant]
  3. NEURONTIN [Concomitant]
  4. SORIATANE [Concomitant]

REACTIONS (2)
  - DRUG INEFFECTIVE [None]
  - INITIAL INSOMNIA [None]
